FAERS Safety Report 6887571-0 (Version None)
Quarter: 2010Q3

REPORT INFORMATION
  Report Type: 
  Country: None (occurrence: None)
  Receive Date: 20100730
  Receipt Date: 20100726
  Transmission Date: 20110219
  Serious: Yes (Hospitalization)
  Sender: FDA-Public Use
  Company Number: US-WYE-H16396910

PATIENT
  Age: 64 Year
  Sex: Female
  Weight: 63.5 kg

DRUGS (4)
  1. PIPERACILLIN AND TAZOBACTAM [Suspect]
     Indication: ENTERITIS
  2. HYDROCHLOROTHIAZIDE [Concomitant]
  3. ACETYLSALICYLIC ACID SRT [Concomitant]
  4. AMLODIPINE [Concomitant]

REACTIONS (1)
  - PETECHIAE [None]
